FAERS Safety Report 10726162 (Version 1)
Quarter: 2015Q1

REPORT INFORMATION
  Report Type: Spontaneous
  Country: FI (occurrence: None)
  Receive Date: 20150116
  Receipt Date: 20150116
  Transmission Date: 20150721
  Serious: Yes (Hospitalization, Other)
  Sender: FDA-Public Use
  Company Number: FI-ZYDUS-006374

PATIENT
  Age: 20 Year
  Sex: Female

DRUGS (2)
  1. SODIUM VALPROATE [Suspect]
     Active Substance: VALPROATE SODIUM
     Indication: PARTIAL SEIZURES
     Dosage: 1500.00-MG-1.0DAYS
  2. OXCARBAZEPINE. [Suspect]
     Active Substance: OXCARBAZEPINE

REACTIONS (12)
  - Pancreatitis [None]
  - Toxicity to various agents [None]
  - Headache [None]
  - Balance disorder [None]
  - Post procedural complication [None]
  - Metabolic encephalopathy [None]
  - Epilepsy [None]
  - Acute hepatic failure [None]
  - Visual impairment [None]
  - Liver transplant [None]
  - Pancreatic insufficiency [None]
  - Urine copper increased [None]
